FAERS Safety Report 19055596 (Version 1)
Quarter: 2021Q1

REPORT INFORMATION
  Report Type: Spontaneous
  Country: US (occurrence: US)
  Receive Date: 20210325
  Receipt Date: 20210325
  Transmission Date: 20210420
  Serious: Yes (Hospitalization)
  Sender: FDA-Public Use
  Company Number: US-STRIDES ARCOLAB LIMITED-2020SP009639

PATIENT
  Age: 23 Year
  Sex: Female

DRUGS (2)
  1. METRONIDAZOLE. [Suspect]
     Active Substance: METRONIDAZOLE
     Indication: TRICHOMONIASIS
     Dosage: 1000 MILLIGRAM
     Route: 065
  2. METRONIDAZOLE. [Suspect]
     Active Substance: METRONIDAZOLE
     Dosage: 1000 UNK
     Route: 065

REACTIONS (9)
  - Oedematous pancreatitis [Recovered/Resolved]
  - Vomiting [Recovered/Resolved]
  - Pancreatitis [Recovered/Resolved]
  - Abdominal tenderness [Recovered/Resolved]
  - Feeding disorder [Recovered/Resolved]
  - Nausea [Recovered/Resolved]
  - Abdominal pain [Recovered/Resolved]
  - Sinus tachycardia [Unknown]
  - Abdominal pain upper [Recovered/Resolved]
